FAERS Safety Report 8383154-4 (Version None)
Quarter: 2012Q2

REPORT INFORMATION
  Report Type: 
  Country: None (occurrence: None)
  Receive Date: 20120524
  Receipt Date: 20120516
  Transmission Date: 20120825
  Serious: Yes (Other)
  Sender: FDA-Public Use
  Company Number: US-ASTELLAS-2012US004767

PATIENT
  Age: 80 Year
  Sex: Male

DRUGS (1)
  1. LEXISCAN [Suspect]
     Indication: SCAN MYOCARDIAL PERFUSION
     Dosage: UNK
     Route: 065
     Dates: start: 20120510, end: 20120510

REACTIONS (3)
  - APNOEA [None]
  - DYSPNOEA [None]
  - CARDIAC ARREST [None]
